FAERS Safety Report 4542234-1 (Version None)
Quarter: 2004Q4

REPORT INFORMATION
  Report Type: 
  Country: None (occurrence: None)
  Receive Date: 20041227
  Receipt Date: 20041220
  Transmission Date: 20050328
  Serious: Yes (Hospitalization)
  Sender: FDA-Public Use
  Company Number: HQWYE150622DEC04

PATIENT
  Age: 41 Year
  Sex: Female
  Weight: 63.56 kg

DRUGS (3)
  1. EFFEXOR XR [Suspect]
     Indication: HEADACHE
     Dosage: 75 MG 5X PER 1 DAY, ORAL
     Route: 048
     Dates: start: 20000101, end: 20040601
  2. LISINOPRIL [Concomitant]
  3. ZONISAMIDE (ZONISAMIDE) [Concomitant]

REACTIONS (9)
  - ABNORMAL DREAMS [None]
  - ARTERIOSPASM CORONARY [None]
  - DRUG WITHDRAWAL SYNDROME [None]
  - FATIGUE [None]
  - HYPERHIDROSIS [None]
  - INSOMNIA [None]
  - MOOD ALTERED [None]
  - MYOCARDIAL INFARCTION [None]
  - TREATMENT NONCOMPLIANCE [None]
